FAERS Safety Report 8936830 (Version 1)
Quarter: 2012Q4

REPORT INFORMATION
  Report Type: 
  Country: GB (occurrence: GB)
  Receive Date: 20121130
  Receipt Date: 20121130
  Transmission Date: 20130627
  Serious: Yes (Death, Other)
  Sender: FDA-Public Use
  Company Number: PHHY2012GB109470

PATIENT
  Age: 3 Month
  Sex: Female

DRUGS (2)
  1. CICLOSPORIN [Suspect]
     Indication: PROPHYLAXIS AGAINST GRAFT VERSUS HOST DISEASE
  2. MYCOPHENOLATE MOFETIL [Suspect]
     Indication: PROPHYLAXIS AGAINST GRAFT VERSUS HOST DISEASE

REACTIONS (6)
  - Pulmonary arterial hypertension [Fatal]
  - Pulmonary haemorrhage [Fatal]
  - Respiratory syncytial virus infection [Unknown]
  - Acute graft versus host disease in intestine [Recovered/Resolved]
  - Acute graft versus host disease in skin [Recovered/Resolved]
  - Respiratory distress [Unknown]
